FAERS Safety Report 4278268-4 (Version None)
Quarter: 2004Q1

REPORT INFORMATION
  Report Type: 
  Country: None (occurrence: None)
  Receive Date: 20040121
  Receipt Date: 20040107
  Transmission Date: 20041129
  Serious: Yes (Hospitalization)
  Sender: FDA-Public Use
  Company Number: 04P-056-0246765-00

PATIENT
  Age: 56 Year
  Sex: Male
  Weight: 50 kg

DRUGS (6)
  1. KALETRA [Suspect]
     Indication: HIV INFECTION
     Dosage: 400 MG, 2 IN 1 D, PER ORAL
     Route: 048
     Dates: start: 20031022
  2. ZIDOVUDINE W/LAMIVUDINE [Suspect]
     Indication: HIV INFECTION
     Dosage: PER ORAL
     Route: 048
     Dates: start: 20031022
  3. TENOFOVIR [Suspect]
     Indication: HIV INFECTION
     Dosage: 300 MG, 1 IN 1 D, PER ORAL
     Route: 048
     Dates: start: 20031023
  4. DIDANOSINE [Suspect]
     Indication: HIV INFECTION
     Dosage: 250 MG, 1 IN 1 D, PER ORAL
     Route: 048
     Dates: start: 20031022
  5. ENFUVIRTIDE [Suspect]
     Indication: HIV INFECTION
     Dosage: 90 MG, 2 IN 1 D, SUBCUTANEOUS
     Route: 058
     Dates: start: 20031022
  6. BACTRIM [Suspect]
     Dosage: 1 DOSAGE FORMS, 1 IN 1 D, PER ORAL
     Route: 048

REACTIONS (2)
  - PNEUMONIA PNEUMOCOCCAL [None]
  - SPUTUM CULTURE POSITIVE [None]
